FAERS Safety Report 7672990-5 (Version None)
Quarter: 2011Q3

REPORT INFORMATION
  Report Type: 
  Country: None (occurrence: None)
  Receive Date: 20110809
  Receipt Date: 20110729
  Transmission Date: 20111222
  Serious: Yes (Hospitalization)
  Sender: FDA-Public Use
  Company Number: KR-AMGEN-KORSP2011037516

PATIENT
  Age: 44 Year
  Sex: Male

DRUGS (10)
  1. CINACALCET HYDROCHLORIDE [Suspect]
     Dosage: 50 MG, UNK
     Route: 048
     Dates: start: 20110613, end: 20110708
  2. KETOROLAC TROMETHAMINE [Concomitant]
     Dosage: UNCERTAINTY
     Route: 065
  3. ALMAGATE [Concomitant]
     Dosage: UNCERTAINTY
     Route: 065
     Dates: start: 20110629, end: 20110630
  4. ALMAGATE [Concomitant]
     Dosage: UNCERTAINTY
     Route: 065
  5. KETOROLAC TROMETHAMINE [Concomitant]
     Dosage: UNCERTAINTY
     Route: 065
     Dates: start: 20110629, end: 20110630
  6. ALMAGATE [Concomitant]
     Dosage: UNCERTAINTY
     Route: 065
     Dates: start: 20110704, end: 20110709
  7. CINACALCET HYDROCHLORIDE [Suspect]
     Indication: HYPERPARATHYROIDISM
     Dosage: 25 MG, UNK
     Route: 048
     Dates: start: 20110415, end: 20110612
  8. KETOROLAC TROMETHAMINE [Concomitant]
     Dosage: UNCERTAINTY
     Route: 065
     Dates: start: 20110704, end: 20110709
  9. CEFIXIME [Concomitant]
     Dosage: UNCERTAINTY
     Route: 065
     Dates: start: 20110629, end: 20110703
  10. CEFACLOR [Concomitant]
     Dosage: UNCERTAINTY
     Route: 065
     Dates: start: 20110704, end: 20110709

REACTIONS (8)
  - PULMONARY OEDEMA [None]
  - DECREASED APPETITE [None]
  - OSTEOTOMY [None]
  - PERICARDIAL EFFUSION [None]
  - NAUSEA [None]
  - EATING DISORDER [None]
  - ANAEMIA [None]
  - DYSPNOEA [None]
